FAERS Safety Report 5194486-5 (Version None)
Quarter: 2006Q4

REPORT INFORMATION
  Report Type: 
  Country: None (occurrence: None)
  Receive Date: 20061226
  Receipt Date: 20061212
  Transmission Date: 20070319
  Serious: Yes (Other)
  Sender: FDA-Public Use
  Company Number: HQWYE966113DEC06

PATIENT
  Age: 57 Year
  Sex: Male
  Weight: 79.9 kg

DRUGS (4)
  1. EFFEXOR XR [Suspect]
     Indication: ANXIETY
     Dosage: 37.5 MG 1X PER 1 DAY, ORAL
     Route: 048
     Dates: start: 20060901, end: 20061001
  2. EFFEXOR XR [Suspect]
     Indication: STRESS
     Dosage: 37.5 MG 1X PER 1 DAY, ORAL
     Route: 048
     Dates: start: 20060901, end: 20061001
  3. ALCOHOL (ETHANOL) [Suspect]
     Dosage: AMOUNT AND FREQUENCY UNSPECIFIED
  4. LEXAPRO [Concomitant]

REACTIONS (6)
  - ABNORMAL BEHAVIOUR [None]
  - ALCOHOL INTERACTION [None]
  - AMNESIA [None]
  - BLOOD ALCOHOL INCREASED [None]
  - CONVULSION [None]
  - ROAD TRAFFIC ACCIDENT [None]
